FAERS Safety Report 8216129-6 (Version None)
Quarter: 2012Q1

REPORT INFORMATION
  Report Type: 
  Country: None (occurrence: None)
  Receive Date: 20120316
  Receipt Date: 20120308
  Transmission Date: 20120608
  Serious: Yes (Life-Threatening, Hospitalization, Other)
  Sender: FDA-Public Use
  Company Number: US-ELI_LILLY_AND_COMPANY-US201202006847

PATIENT
  Sex: Female
  Weight: 107.9 kg

DRUGS (8)
  1. HUMALOG [Suspect]
     Indication: DIABETES MELLITUS
     Dosage: UNK UNK, UNKNOWN
     Route: 058
     Dates: start: 20120101, end: 20120213
  2. VALSARTAN [Concomitant]
     Dosage: 160 MG, QD
  3. HUMALOG [Suspect]
     Dosage: UNK, UNKNOWN
     Route: 058
     Dates: start: 20120101
  4. FAMOTIDINE [Concomitant]
     Dosage: UNK UNK, BID
  5. ALPRAZOLAM [Concomitant]
     Dosage: 0.5 MG, TID
  6. OMEPRAZOLE [Concomitant]
     Dosage: 20 MG, QD
  7. PRAVASTATIN [Concomitant]
     Dosage: 80 MG, EACH EVENING
  8. LASIX [Suspect]
     Dosage: 10 MG, BID

REACTIONS (6)
  - BLOOD GLUCOSE INCREASED [None]
  - TRANSIENT ISCHAEMIC ATTACK [None]
  - HOSPITALISATION [None]
  - HYPOGLYCAEMIC UNCONSCIOUSNESS [None]
  - DRUG INEFFECTIVE [None]
  - DIABETIC KETOACIDOSIS [None]
